FAERS Safety Report 12204513 (Version 5)
Quarter: 2016Q2

REPORT INFORMATION
  Report Type: Spontaneous
  Country: US (occurrence: US)
  Receive Date: 20160323
  Receipt Date: 20160531
  Transmission Date: 20160815
  Serious: No
  Sender: FDA-Public Use
  Company Number: US-PFIZER INC-2016151345

PATIENT
  Age: 62 Year
  Sex: Male
  Weight: 126.98 kg

DRUGS (5)
  1. METOPROLOL. [Concomitant]
     Active Substance: METOPROLOL
     Dosage: UNK
  2. SUTENT [Suspect]
     Active Substance: SUNITINIB MALATE
     Indication: METASTATIC RENAL CELL CARCINOMA
     Dosage: 50 MG, CYCLIC (2 WEEKS ON / 1 WEEK OFF)
     Dates: start: 20160224, end: 20160518
  3. AMLODIPINE [Concomitant]
     Active Substance: AMLODIPINE BESYLATE
     Dosage: UNK
  4. LIPITOR [Concomitant]
     Active Substance: ATORVASTATIN CALCIUM
     Dosage: UNK
  5. TURMERIC [Concomitant]
     Active Substance: TURMERIC

REACTIONS (19)
  - Yellow skin [Recovered/Resolved]
  - Sunburn [Unknown]
  - Toothache [Recovered/Resolved]
  - Oral pain [Unknown]
  - Dehydration [Recovered/Resolved]
  - Blood urine present [Unknown]
  - Joint swelling [Unknown]
  - Urine abnormality [Unknown]
  - Depressed mood [Unknown]
  - Dry skin [Unknown]
  - Urine output decreased [Unknown]
  - Metastatic renal cell carcinoma [Unknown]
  - Back pain [Recovered/Resolved]
  - Blood pressure decreased [Unknown]
  - Arthralgia [Unknown]
  - Fatigue [Unknown]
  - Hair colour changes [Unknown]
  - Disease progression [Unknown]
  - Chromaturia [Recovered/Resolved]

NARRATIVE: CASE EVENT DATE: 20160309
